FAERS Safety Report 26174564 (Version 1)
Quarter: 2025Q4

REPORT INFORMATION
  Report Type: Report from Study
  Country: US (occurrence: US)
  Receive Date: 20251218
  Receipt Date: 20251218
  Transmission Date: 20260117
  Serious: Yes (Other)
  Sender: JOHNSON AND JOHNSON
  Company Number: US-JNJFOC-20251157220

PATIENT
  Age: 53 Year
  Sex: Female

DRUGS (1)
  1. SPRAVATO [Suspect]
     Active Substance: ESKETAMINE
     Indication: Depression
     Dosage: ^84 MG, 5 TOTAL DOSES^
     Route: 045
     Dates: start: 20251110, end: 20251204

REACTIONS (20)
  - Suicidal ideation [Unknown]
  - Emotional distress [Unknown]
  - Nervousness [Unknown]
  - Fear [Unknown]
  - Headache [Unknown]
  - Dizziness [Unknown]
  - Head discomfort [Unknown]
  - Feeling hot [Unknown]
  - Pruritus [Unknown]
  - Feeling cold [Unknown]
  - Micturition disorder [Unknown]
  - Illusion [Unknown]
  - Nausea [Unknown]
  - Anxiety [Recovered/Resolved]
  - Hypoaesthesia oral [Unknown]
  - Myalgia [Unknown]
  - Mood altered [Unknown]
  - Disturbance in attention [Unknown]
  - Discomfort [Unknown]
  - Initial insomnia [Unknown]

NARRATIVE: CASE EVENT DATE: 20250101
